FAERS Safety Report 5554194-5 (Version None)
Quarter: 2007Q4

REPORT INFORMATION
  Report Type: 
  Country: None (occurrence: None)
  Receive Date: 20071213
  Receipt Date: 20070722
  Transmission Date: 20080405
  Serious: No
  Sender: FDA-Public Use
  Company Number: US-AMGEN-KDL235452

PATIENT
  Sex: Female

DRUGS (4)
  1. ENBREL [Suspect]
     Indication: RHEUMATOID ARTHRITIS
     Route: 058
     Dates: start: 20070622
  2. PLAQUENIL [Concomitant]
     Route: 048
     Dates: start: 19940101
  3. SULFASALAZINE [Concomitant]
     Route: 048
     Dates: start: 19940101
  4. METHOTREXATE [Concomitant]
     Route: 058
     Dates: start: 20010101

REACTIONS (3)
  - FATIGUE [None]
  - INJECTION SITE BRUISING [None]
  - SINUSITIS [None]
